FAERS Safety Report 9617218 (Version 1)
Quarter: 2013Q4

REPORT INFORMATION
  Report Type: Spontaneous
  Country: US (occurrence: None)
  Receive Date: 20131011
  Receipt Date: 20131011
  Transmission Date: 20140711
  Serious: Yes (Hospitalization, Other)
  Sender: FDA-Public Use
  Company Number: None

PATIENT
  Age: 13 Year
  Sex: Male
  Weight: 58.97 kg

DRUGS (1)
  1. MEFLOQUINE [Suspect]
     Indication: MALARIA PROPHYLAXIS
     Dosage: 1 TABLET, TAKEN BY MOUTH
     Route: 048

REACTIONS (8)
  - Hallucination [None]
  - Headache [None]
  - Verbigeration [None]
  - Nightmare [None]
  - Insomnia [None]
  - Mood swings [None]
  - Amnesia [None]
  - Abnormal behaviour [None]
